FAERS Safety Report 6566026-7 (Version None)
Quarter: 2010Q1

REPORT INFORMATION
  Report Type: 
  Country: None (occurrence: None)
  Receive Date: 20100129
  Receipt Date: 20100129
  Transmission Date: 20100710
  Serious: Yes (Hospitalization, Disabling)
  Sender: FDA-Public Use
  Company Number: None

PATIENT
  Sex: Male
  Weight: 80.2867 kg

DRUGS (1)
  1. DEPAKOTE [Suspect]
     Indication: EPILEPSY
     Dosage: 250 MG 5X/DAY
     Dates: end: 20091001

REACTIONS (7)
  - CONVULSION [None]
  - DYSPHONIA [None]
  - FATIGUE [None]
  - HAEMORRHAGE [None]
  - NERVE INJURY [None]
  - SOMNOLENCE [None]
  - TREMOR [None]
